FAERS Safety Report 9691914 (Version 1)
Quarter: 2013Q4

REPORT INFORMATION
  Report Type: Spontaneous
  Country: IT (occurrence: IT)
  Receive Date: 20131117
  Receipt Date: 20131117
  Transmission Date: 20140711
  Serious: Yes (Death, Hospitalization, Other)
  Sender: FDA-Public Use
  Company Number: IT-INDICUS PHARMA-000110

PATIENT
  Age: 53 Year
  Sex: Male

DRUGS (1)
  1. METFORMIN HYDROCHLORIDE [Suspect]
     Indication: DIABETES MELLITUS
     Route: 048

REACTIONS (5)
  - Toxicity to various agents [Unknown]
  - Lactic acidosis [Recovering/Resolving]
  - Renal failure acute [Unknown]
  - Myocardial infarction [Fatal]
  - Hypotension [Fatal]
